FAERS Safety Report 24954079 (Version 2)
Quarter: 2025Q1

REPORT INFORMATION
  Report Type: Report from Study
  Country: US (occurrence: US)
  Receive Date: 20250211
  Receipt Date: 20250303
  Transmission Date: 20250409
  Serious: Yes (Hospitalization)
  Sender: ALEXION PHARMACEUTICALS
  Company Number: US-AstraZeneca-CH-00798068A

PATIENT

DRUGS (1)
  1. SOLIRIS [Suspect]
     Active Substance: ECULIZUMAB
     Indication: Neuromyelitis optica spectrum disorder

REACTIONS (8)
  - Bone lesion [Unknown]
  - Muscle spasms [Recovering/Resolving]
  - Brain fog [Unknown]
  - Pain [Unknown]
  - Burning sensation [Unknown]
  - Chest discomfort [Unknown]
  - Swelling face [Unknown]
  - Peripheral swelling [Unknown]
